FAERS Safety Report 6426625-X (Version None)
Quarter: 2009Q4

REPORT INFORMATION
  Report Type: 
  Country: None (occurrence: None)
  Receive Date: 20091030
  Receipt Date: 20090507
  Transmission Date: 20100525
  Serious: Yes (Hospitalization, Other)
  Sender: FDA-Public Use
  Company Number: CL-54-2009

PATIENT
  Age: 77 Year
  Sex: Female

DRUGS (9)
  1. CIPROFLOXACIN [Suspect]
     Indication: URINARY TRACT INFECTION
     Dosage: TWICE DAY/ORAL
     Route: 048
  2. SIMVASTATIN [Suspect]
     Dosage: 40 MG /DAY
  3. ISOSORBIDE MONONITRATE [Concomitant]
  4. PINDOLOL [Concomitant]
  5. CIMETIDINE [Concomitant]
  6. NICORANDIOL [Concomitant]
  7. ASPIRIN [Concomitant]
  8. FUROSEMIDE [Concomitant]
  9. LEVOTHYROXINE SODIUM [Concomitant]

REACTIONS (5)
  - BLOOD PRESSURE SYSTOLIC INCREASED [None]
  - CHROMATURIA [None]
  - DYSSTASIA [None]
  - MUSCULAR WEAKNESS [None]
  - MYALGIA [None]
